FAERS Safety Report 9543686 (Version 3)
Quarter: 2013Q4

REPORT INFORMATION
  Report Type: Spontaneous
  Country: JP (occurrence: JP)
  Receive Date: 20130923
  Receipt Date: 20131028
  Transmission Date: 20140711
  Serious: Yes (Death, Hospitalization)
  Sender: FDA-Public Use
  Company Number: JP-SANOFI-AVENTIS-2013SA092871

PATIENT
  Age: 59 Year
  Sex: Female
  Weight: 43 kg

DRUGS (3)
  1. FABRAZYME [Suspect]
     Indication: FABRY^S DISEASE
     Route: 042
     Dates: start: 2002
  2. FABRAZYME [Suspect]
     Indication: FABRY^S DISEASE
     Dosage: ADDITIONAL DOSE- 35 MG/DOSE, TWICE IN 4 WEEKS
     Route: 042
     Dates: start: 20060419, end: 20130829
  3. FABRAZYME [Suspect]
     Indication: FABRY^S DISEASE
     Dosage: TWICE IN FOUR WEEKS
     Route: 042
     Dates: start: 20060419, end: 20130829

REACTIONS (8)
  - Breast cancer [Fatal]
  - Neoplasm [Fatal]
  - Metastasis [Fatal]
  - General physical health deterioration [Fatal]
  - Infection [Fatal]
  - Pyrexia [Fatal]
  - Neutropenia [Unknown]
  - Malaise [Unknown]
